FAERS Safety Report 4430542-4 (Version None)
Quarter: 2004Q3

REPORT INFORMATION
  Report Type: 
  Country: None (occurrence: None)
  Receive Date: 20040818
  Receipt Date: 20040729
  Transmission Date: 20050211
  Serious: Yes (Other)
  Sender: FDA-Public Use
  Company Number: GBS040815351

PATIENT
  Age: 20 Year
  Sex: Male

DRUGS (1)
  1. ZYPREXA [Suspect]
     Indication: SCHIZOPHRENIA
     Dosage: 10 MG

REACTIONS (3)
  - ARRHYTHMIA [None]
  - BUNDLE BRANCH BLOCK LEFT [None]
  - SINUS BRADYCARDIA [None]
